FAERS Safety Report 10385387 (Version 1)
Quarter: 2014Q3

REPORT INFORMATION
  Report Type: Spontaneous
  Country: None (occurrence: None)
  Receive Date: 20140806
  Receipt Date: 20140806
  Transmission Date: 20150326
  Serious: Yes (Death)
  Sender: FDA-Public Use
  Company Number: T-2014-283

PATIENT
  Age: 2 Year
  Sex: Male

DRUGS (1)
  1. CYSTADANE [Suspect]
     Active Substance: BETAINE

REACTIONS (2)
  - General physical health deterioration [None]
  - Respiratory failure [None]

NARRATIVE: CASE EVENT DATE: 20140711
